FAERS Safety Report 7428718-7 (Version None)
Quarter: 2011Q2

REPORT INFORMATION
  Report Type: 
  Country: None (occurrence: None)
  Receive Date: 20110415
  Receipt Date: 20110415
  Transmission Date: 20111010
  Serious: Yes (Other)
  Sender: FDA-Public Use
  Company Number: None

PATIENT
  Age: 76 Year
  Sex: Male

DRUGS (1)
  1. AVELOX [Suspect]
     Indication: INFECTION
     Dosage: 400MG PO
     Route: 048

REACTIONS (1)
  - LIP SWELLING [None]
